FAERS Safety Report 4913961-9 (Version None)
Quarter: 2006Q1

REPORT INFORMATION
  Report Type: 
  Country: None (occurrence: None)
  Receive Date: 20060216
  Receipt Date: 20060123
  Transmission Date: 20060701
  Serious: Yes (Death, Hospitalization)
  Sender: FDA-Public Use
  Company Number: US-MERCK-0601USA02654

PATIENT
  Age: 69 Year
  Sex: Female
  Weight: 61 kg

DRUGS (1)
  1. VIOXX [Suspect]
     Indication: OSTEOARTHRITIS
     Route: 048
     Dates: start: 20000424, end: 20011027

REACTIONS (9)
  - ANAL FISSURE [None]
  - AORTIC VALVE STENOSIS [None]
  - CEREBROVASCULAR ACCIDENT [None]
  - COMA [None]
  - HAEMATOMA [None]
  - HYPERTENSION [None]
  - MITRAL VALVE STENOSIS [None]
  - MUSCLE SPASMS [None]
  - PAIN [None]
